FAERS Safety Report 4441721-4 (Version None)
Quarter: 2004Q3

REPORT INFORMATION
  Report Type: 
  Country: None (occurrence: None)
  Receive Date: 20040907
  Receipt Date: 20040825
  Transmission Date: 20050211
  Serious: Yes (Other)
  Sender: FDA-Public Use
  Company Number: US-JNJFOC-20040808957

PATIENT
  Sex: Female
  Weight: 70.31 kg

DRUGS (5)
  1. REMICADE [Suspect]
     Route: 042
  2. REMICADE [Suspect]
     Indication: RHEUMATOID ARTHRITIS
     Route: 042
  3. ATENOLOL [Concomitant]
  4. LIPITOR [Concomitant]
  5. METHOTREXATE SODIUM [Concomitant]

REACTIONS (2)
  - NERVE COMPRESSION [None]
  - SCIATIC NERVE INJURY [None]
